FAERS Safety Report 19654455 (Version 1)
Quarter: 2021Q3

REPORT INFORMATION
  Report Type: Spontaneous
  Country: CA (occurrence: CA)
  Receive Date: 20210803
  Receipt Date: 20210803
  Transmission Date: 20211014
  Serious: Yes (Other)
  Sender: FDA-Public Use
  Company Number: NVSC2021CA168327

PATIENT
  Sex: Female

DRUGS (8)
  1. LETROZOLE. [Suspect]
     Active Substance: LETROZOLE
     Indication: OVARIAN ENDOMETRIOID CARCINOMA
     Dosage: UNK
     Route: 065
     Dates: start: 201508, end: 201903
  2. CARBOPLATIN. [Suspect]
     Active Substance: CARBOPLATIN
     Dosage: UNK
     Route: 065
     Dates: start: 202104
  3. PALBOCICLIB [Suspect]
     Active Substance: PALBOCICLIB
     Indication: OVARIAN ENDOMETRIOID CARCINOMA
     Dosage: UNK
     Route: 065
  4. CARBOPLATIN. [Suspect]
     Active Substance: CARBOPLATIN
     Indication: OVARIAN ENDOMETRIOID CARCINOMA
     Dosage: UNK
     Route: 065
     Dates: start: 202103
  5. PACLITAXEL. [Suspect]
     Active Substance: PACLITAXEL
     Indication: OVARIAN ENDOMETRIOID CARCINOMA
     Dosage: UNK
     Route: 065
     Dates: start: 202103
  6. TAMOXIFEN [Suspect]
     Active Substance: TAMOXIFEN
     Indication: OVARIAN ENDOMETRIOID CARCINOMA
     Dosage: UNK
     Route: 065
     Dates: start: 202008
  7. PACLITAXEL. [Suspect]
     Active Substance: PACLITAXEL
     Dosage: UNK
     Route: 065
     Dates: start: 202104
  8. MEGESTROL ACETATE. [Suspect]
     Active Substance: MEGESTROL ACETATE
     Indication: OVARIAN ENDOMETRIOID CARCINOMA
     Dosage: UNK
     Route: 065
     Dates: start: 201907, end: 202003

REACTIONS (4)
  - Malignant neoplasm progression [Unknown]
  - Product use in unapproved indication [Unknown]
  - Ovarian endometrioid carcinoma [Unknown]
  - Metastases to liver [Unknown]
